FAERS Safety Report 9221015 (Version 4)
Quarter: 2014Q3

REPORT INFORMATION
  Report Type: Spontaneous
  Country: US (occurrence: US)
  Receive Date: 20130409
  Receipt Date: 20140702
  Transmission Date: 20150326
  Serious: Yes (Hospitalization, Other)
  Sender: FDA-Public Use
  Company Number: US-009507513-1304USA003378

PATIENT
  Sex: Female
  Weight: 56.69 kg

DRUGS (1)
  1. NUVARING [Suspect]
     Active Substance: ETHINYL ESTRADIOL\ETONOGESTREL
     Dosage: UNK
     Dates: start: 200711, end: 201111

REACTIONS (12)
  - Nausea [Unknown]
  - Iron deficiency anaemia [Unknown]
  - Cryotherapy [Unknown]
  - Loop electrosurgical excision procedure [Unknown]
  - Anxiety [Unknown]
  - Constipation [Recovered/Resolved]
  - Pneumonia [Unknown]
  - Hepatomegaly [Unknown]
  - Papilloma viral infection [Unknown]
  - Herpes simplex [Unknown]
  - Irritable bowel syndrome [Unknown]
  - Pulmonary embolism [Unknown]

NARRATIVE: CASE EVENT DATE: 2008
